FAERS Safety Report 17807098 (Version 1)
Quarter: 2020Q2

REPORT INFORMATION
  Report Type: Spontaneous
  Country: AT (occurrence: AT)
  Receive Date: 20200520
  Receipt Date: 20200520
  Transmission Date: 20200714
  Serious: Yes (Other)
  Sender: FDA-Public Use
  Company Number: AT-TEVA-2020-AT-1236511

PATIENT
  Age: 47 Year
  Sex: Male

DRUGS (1)
  1. NAPROBENE 500 MG - FILMTABLETTEN [Suspect]
     Active Substance: NAPROXEN
     Dosage: ACCORDING TO SPECIALIST INFORMATION
     Route: 048
     Dates: start: 20200428, end: 20200428

REACTIONS (1)
  - Type I hypersensitivity [Unknown]

NARRATIVE: CASE EVENT DATE: 20200428
